FAERS Safety Report 6792351-0 (Version None)
Quarter: 2010Q2

REPORT INFORMATION
  Report Type: 
  Country: None (occurrence: None)
  Receive Date: 20100624
  Receipt Date: 20080801
  Transmission Date: 20101027
  Serious: Yes (Hospitalization, Other)
  Sender: FDA-Public Use
  Company Number: US-PFIZER INC-2008064375

PATIENT
  Sex: Female

DRUGS (4)
  1. GEODON [Suspect]
     Indication: PSYCHOTIC DISORDER
     Dates: start: 20070601
  2. GEODON [Suspect]
     Indication: BIPOLAR DISORDER
  3. CONCERTA [Concomitant]
  4. HERBAL PREPARATION [Concomitant]

REACTIONS (3)
  - OVERDOSE [None]
  - PLATELET COUNT DECREASED [None]
  - WHITE BLOOD CELL COUNT DECREASED [None]
